FAERS Safety Report 12991263 (Version 1)
Quarter: 2016Q4

REPORT INFORMATION
  Report Type: Spontaneous
  Country: US (occurrence: US)
  Receive Date: 20161201
  Receipt Date: 20161201
  Transmission Date: 20170207
  Serious: Yes (Other)
  Sender: FDA-Public Use
  Company Number: US-ELI_LILLY_AND_COMPANY-US201611008821

PATIENT
  Age: 69 Year
  Sex: Female

DRUGS (3)
  1. FORTEO [Suspect]
     Active Substance: TERIPARATIDE
     Indication: OSTEOPOROSIS
     Dosage: UNK, QD
     Route: 065
     Dates: start: 201604
  2. ZOLOFT [Concomitant]
     Active Substance: SERTRALINE HYDROCHLORIDE
  3. CRESTOR [Concomitant]
     Active Substance: ROSUVASTATIN CALCIUM

REACTIONS (5)
  - Pain in extremity [Unknown]
  - Arthralgia [Not Recovered/Not Resolved]
  - Muscle spasms [Recovered/Resolved]
  - Muscular weakness [Unknown]
  - Myalgia [Unknown]

NARRATIVE: CASE EVENT DATE: 201604
